FAERS Safety Report 16914145 (Version 1)
Quarter: 2019Q4

REPORT INFORMATION
  Report Type: Spontaneous
  Country: US (occurrence: US)
  Receive Date: 20190821
  Receipt Date: 20190821
  Transmission Date: 20200122
  Serious: Yes (Hospitalization)
  Sender: FDA-Public Use
  Company Number: None

PATIENT
  Age: 54 Year
  Sex: Male
  Weight: 59 kg

DRUGS (1)
  1. GEMCITABINE. [Suspect]
     Active Substance: GEMCITABINE
     Indication: CHOLANGIOCARCINOMA
     Dosage: 1000 MG/M3  DAY 1 + 8 IV?C1D1  07-30-2019
     Route: 042
     Dates: start: 20190730

REACTIONS (5)
  - Chromaturia [None]
  - Constipation [None]
  - Abdominal pain [None]
  - Cerebrovascular accident [None]
  - Cough [None]

NARRATIVE: CASE EVENT DATE: 20190820
